FAERS Safety Report 6544374-4 (Version None)
Quarter: 2010Q1

REPORT INFORMATION
  Report Type: 
  Country: None (occurrence: None)
  Receive Date: 20100121
  Receipt Date: 20100113
  Transmission Date: 20100710
  Serious: Yes (Hospitalization)
  Sender: FDA-Public Use
  Company Number: US-BIOGENIDEC-2008BI025198

PATIENT
  Age: 48 Year
  Sex: Female

DRUGS (2)
  1. TYSABRI [Suspect]
     Indication: MULTIPLE SCLEROSIS
     Route: 042
     Dates: start: 20030101, end: 20050224
  2. TYSABRI [Suspect]
     Route: 042
     Dates: start: 20071024, end: 20080714

REACTIONS (6)
  - BALANCE DISORDER [None]
  - BLINDNESS [None]
  - IMPATIENCE [None]
  - SCOLIOSIS [None]
  - VISION BLURRED [None]
  - VISUAL IMPAIRMENT [None]
